FAERS Safety Report 16561631 (Version 2)
Quarter: 2019Q3

REPORT INFORMATION
  Report Type: Spontaneous
  Country: IT (occurrence: IT)
  Receive Date: 20190711
  Receipt Date: 20190731
  Transmission Date: 20191004
  Serious: Yes (Life-Threatening)
  Sender: FDA-Public Use
  Company Number: IT-JNJFOC-20190621248

PATIENT
  Age: 73 Year
  Sex: Female
  Weight: 68 kg

DRUGS (3)
  1. SOTALOL. [Concomitant]
     Active Substance: SOTALOL
     Dosage: UNK
  2. XARELTO [Suspect]
     Active Substance: RIVAROXABAN
     Indication: CARDIAC FIBRILLATION
     Dosage: 20 MG, QD
     Route: 048
  3. RAMIPRIL. [Concomitant]
     Active Substance: RAMIPRIL
     Dosage: UNK

REACTIONS (4)
  - Cerebral haemorrhage [Recovering/Resolving]
  - Ruptured cerebral aneurysm [Recovering/Resolving]
  - Cerebellar haemorrhage [Recovering/Resolving]
  - Cerebral arteriovenous malformation haemorrhagic [Recovering/Resolving]

NARRATIVE: CASE EVENT DATE: 20190602
